FAERS Safety Report 14510204 (Version 1)
Quarter: 2018Q1

REPORT INFORMATION
  Report Type: Spontaneous
  Country: US (occurrence: US)
  Receive Date: 20180208
  Receipt Date: 20180208
  Transmission Date: 20180509
  Serious: Yes (Hospitalization)
  Sender: FDA-Public Use
  Company Number: None

PATIENT
  Age: 23 Year
  Sex: Female

DRUGS (28)
  1. ACCU-CHEK [Concomitant]
  2. FORADIL [Concomitant]
     Active Substance: FORMOTEROL FUMARATE
  3. VALACYCLOVIR [Concomitant]
     Active Substance: VALACYCLOVIR HYDROCHLORIDE
  4. LEVEMIR [Concomitant]
     Active Substance: INSULIN DETEMIR
  5. POLYMYXIN B. [Concomitant]
     Active Substance: POLYMYXIN B
  6. ENULOSE [Concomitant]
     Active Substance: LACTULOSE
  7. MONTELUKAST [Concomitant]
     Active Substance: MONTELUKAST SODIUM
  8. PREDNISONE. [Concomitant]
     Active Substance: PREDNISONE
  9. ATENOLOL. [Concomitant]
     Active Substance: ATENOLOL
  10. XOLAIR [Suspect]
     Active Substance: OMALIZUMAB
     Indication: ASTHMA
     Route: 058
     Dates: start: 20161215
  11. SINGULAIR [Concomitant]
     Active Substance: MONTELUKAST SODIUM
  12. NOVOLOG [Concomitant]
     Active Substance: INSULIN ASPART
  13. XOPENEX [Concomitant]
     Active Substance: LEVALBUTEROL HYDROCHLORIDE
  14. PIMOZIDE. [Concomitant]
     Active Substance: PIMOZIDE
  15. OMEPRAZOLE. [Concomitant]
     Active Substance: OMEPRAZOLE
  16. LEFLUNOMIDE. [Concomitant]
     Active Substance: LEFLUNOMIDE
  17. PULMICORT TURBUHALER [Concomitant]
     Active Substance: BUDESONIDE
  18. ITRACONAZOLE. [Concomitant]
     Active Substance: ITRACONAZOLE
  19. AZITHROMYCIN ANHYDROUS. [Concomitant]
     Active Substance: AZITHROMYCIN ANHYDROUS
  20. MINOCYCLINE [Concomitant]
     Active Substance: MINOCYCLINE\MINOCYCLINE HYDROCHLORIDE
  21. PULMOZYME [Suspect]
     Active Substance: DORNASE ALFA
     Indication: CYSTIC FIBROSIS
     Route: 055
     Dates: start: 20170613
  22. ZYRTEC [Concomitant]
     Active Substance: CETIRIZINE HYDROCHLORIDE
  23. HYDROXYCHLOR [Concomitant]
     Active Substance: HYDROXYCHLOROQUINE
  24. BUDESONIDE. [Concomitant]
     Active Substance: BUDESONIDE
  25. ALBUTEROL. [Concomitant]
     Active Substance: ALBUTEROL
  26. RHINOCORT [Concomitant]
     Active Substance: BUDESONIDE
  27. PANCRECARB [Concomitant]
  28. LEVOTHYROXIN [Concomitant]
     Active Substance: LEVOTHYROXINE

REACTIONS (2)
  - Cystic fibrosis [None]
  - Condition aggravated [None]

NARRATIVE: CASE EVENT DATE: 20180205
